FAERS Safety Report 7297975-2 (Version None)
Quarter: 2011Q1

REPORT INFORMATION
  Report Type: 
  Country: None (occurrence: None)
  Receive Date: 20110217
  Receipt Date: 20110211
  Transmission Date: 20110831
  Serious: Yes (Other)
  Sender: FDA-Public Use
  Company Number: GB-JNJFOC-20110204006

PATIENT
  Age: 8 Year
  Sex: Female
  Weight: 25.7 kg

DRUGS (8)
  1. SEVOFLURANE [Suspect]
     Indication: MAINTENANCE OF ANAESTHESIA
     Route: 055
  2. NITRIC OXIDE [Suspect]
     Indication: MAINTENANCE OF ANAESTHESIA
     Route: 055
  3. IBUPROFEN [Suspect]
     Indication: PREMEDICATION
     Route: 048
  4. OXYGEN [Suspect]
     Indication: MAINTENANCE OF ANAESTHESIA
     Route: 055
  5. ACETAMINOPHEN [Suspect]
     Indication: PREMEDICATION
     Route: 048
  6. EQUASYM [Concomitant]
     Indication: ATTENTION DEFICIT/HYPERACTIVITY DISORDER
     Route: 065
  7. ACETAMINOPHEN [Suspect]
     Route: 048
  8. PROPOFOL [Suspect]
     Indication: INDUCTION OF ANAESTHESIA
     Route: 042

REACTIONS (2)
  - URTICARIA [None]
  - SWELLING FACE [None]
